FAERS Safety Report 5268906-1 (Version None)
Quarter: 2007Q1

REPORT INFORMATION
  Report Type: 
  Country: None (occurrence: None)
  Receive Date: 20070319
  Receipt Date: 20070308
  Transmission Date: 20070707
  Serious: Yes (Hospitalization, Other)
  Sender: FDA-Public Use
  Company Number: IE-JNJFOC-20070300172

PATIENT
  Age: 63 Year
  Sex: Male

DRUGS (1)
  1. LEUSTAT [Suspect]
     Indication: HAIRY CELL LEUKAEMIA
     Dosage: 15MG IN 250ML NACL OVER 2HRS
     Route: 042

REACTIONS (2)
  - INCORRECT DRUG ADMINISTRATION RATE [None]
  - SYNCOPE VASOVAGAL [None]
